FAERS Safety Report 5573682-9 (Version None)
Quarter: 2007Q4

REPORT INFORMATION
  Report Type: 
  Country: None (occurrence: None)
  Receive Date: 20071226
  Receipt Date: 20071217
  Transmission Date: 20080405
  Serious: Yes (Other)
  Sender: FDA-Public Use
  Company Number: CA-JNJFOC-20071204837

PATIENT
  Sex: Male
  Weight: 94 kg

DRUGS (4)
  1. REMICADE [Suspect]
     Dosage: 14 TOTAL DOSES
     Route: 042
  2. REMICADE [Suspect]
     Indication: CROHN'S DISEASE
     Route: 042
  3. BENADRYL [Concomitant]
     Indication: PROPHYLAXIS
     Route: 048
  4. PREDNISONE [Concomitant]
     Indication: PROPHYLAXIS
     Route: 048

REACTIONS (4)
  - CHEST DISCOMFORT [None]
  - ELECTROCARDIOGRAM ABNORMAL [None]
  - INFUSION RELATED REACTION [None]
  - MUSCULOSKELETAL PAIN [None]
